FAERS Safety Report 5565324-3 (Version None)
Quarter: 2007Q4

REPORT INFORMATION
  Report Type: 
  Country: None (occurrence: None)
  Receive Date: 20071218
  Receipt Date: 20030725
  Transmission Date: 20080405
  Serious: Yes (Death, Life-Threatening)
  Sender: FDA-Public Use
  Company Number: JP-ROCHE-342360

PATIENT
  Age: 69 Year
  Sex: Male
  Weight: 56 kg

DRUGS (6)
  1. ROCEPHIN [Suspect]
     Indication: LIVER ABSCESS
     Route: 041
     Dates: start: 20030612, end: 20030630
  2. ROCEPHIN [Suspect]
     Route: 041
     Dates: start: 20030701, end: 20030714
  3. DALACIN [Suspect]
     Indication: LIVER ABSCESS
     Route: 042
     Dates: start: 20030612, end: 20030630
  4. DALACIN [Suspect]
     Route: 042
     Dates: start: 20030701, end: 20030714
  5. ZADITEN [Suspect]
     Indication: DRUG USE FOR UNKNOWN INDICATION
     Route: 065
  6. HALCION [Suspect]
     Indication: DRUG USE FOR UNKNOWN INDICATION
     Route: 065

REACTIONS (2)
  - ALTERED STATE OF CONSCIOUSNESS [None]
  - PNEUMONIA [None]
